FAERS Safety Report 11122523 (Version 2)
Quarter: 2015Q3

REPORT INFORMATION
  Report Type: Report from Study
  Country: US (occurrence: US)
  Receive Date: 20150519
  Receipt Date: 20150820
  Transmission Date: 20151125
  Serious: Yes (Other)
  Sender: FDA-Public Use
  Company Number: US-SA-2015SA008884

PATIENT
  Age: 38 Year
  Sex: Female

DRUGS (4)
  1. AUBAGIO [Suspect]
     Active Substance: TERIFLUNOMIDE
     Indication: MULTIPLE SCLEROSIS
     Route: 048
     Dates: start: 20150107
  2. LOSARTAN. [Concomitant]
     Active Substance: LOSARTAN
  3. METOPROLOL [Concomitant]
     Active Substance: METOPROLOL
     Indication: BLOOD PRESSURE MEASUREMENT
  4. LISINOPRIL. [Concomitant]
     Active Substance: LISINOPRIL

REACTIONS (16)
  - Hepatic enzyme increased [Recovered/Resolved]
  - Menstrual disorder [Unknown]
  - Paraesthesia [Unknown]
  - Back pain [Unknown]
  - Head discomfort [Unknown]
  - Hypertension [Recovered/Resolved]
  - Flushing [Unknown]
  - Anxiety [Unknown]
  - Central nervous system lesion [Recovered/Resolved]
  - Fatigue [Unknown]
  - Red blood cells urine [Unknown]
  - Weight increased [Unknown]
  - Alopecia [Recovered/Resolved]
  - Urinary tract infection [Not Recovered/Not Resolved]
  - Alopecia [Unknown]
  - Musculoskeletal discomfort [Unknown]

NARRATIVE: CASE EVENT DATE: 2015
